FAERS Safety Report 7304936-3 (Version None)
Quarter: 2011Q1

REPORT INFORMATION
  Report Type: 
  Country: None (occurrence: None)
  Receive Date: 20110222
  Receipt Date: 20101027
  Transmission Date: 20110831
  Serious: No
  Sender: FDA-Public Use
  Company Number: US-BAYER-201023273BCC

PATIENT
  Sex: Female
  Weight: 104.55 kg

DRUGS (7)
  1. PRAVASTATIN [Concomitant]
  2. CALCIUM WITH VITAMIN D [Concomitant]
  3. ENALAPRIL [Concomitant]
  4. QUESTRAN [Concomitant]
  5. ALEVE [Suspect]
     Indication: ARTHRITIS
     Route: 048
  6. GLUCOSAMINE W/CHONDROITIN SULFATE [Concomitant]
  7. PHENOBARBITAL TAB [Concomitant]

REACTIONS (1)
  - PRURITUS [None]
